FAERS Safety Report 24815830 (Version 7)
Quarter: 2025Q3

REPORT INFORMATION
  Report Type: Spontaneous
  Country: US (occurrence: US)
  Receive Date: 20250107
  Receipt Date: 20250815
  Transmission Date: 20251020
  Serious: Yes (Other)
  Sender: BLUEPRINT MEDICINES
  Company Number: US-Blueprint Medicines Corporation-2025-AER-00017

PATIENT
  Age: 64 Year
  Sex: Female

DRUGS (5)
  1. AYVAKIT [Suspect]
     Active Substance: AVAPRITINIB
     Indication: Systemic mastocytosis
     Route: 065
     Dates: start: 20241126
  2. AYVAKIT [Suspect]
     Active Substance: AVAPRITINIB
     Route: 065
     Dates: start: 20241126
  3. BUDESONIDE [Suspect]
     Active Substance: BUDESONIDE
     Indication: Inflammation
     Route: 065
     Dates: start: 20250728
  4. BUDESONIDE [Suspect]
     Active Substance: BUDESONIDE
     Route: 065
  5. BUDESONIDE [Suspect]
     Active Substance: BUDESONIDE
     Route: 065
     Dates: start: 20250721

REACTIONS (28)
  - Hiatus hernia [Unknown]
  - Dyspnoea [Unknown]
  - Abdominal discomfort [Unknown]
  - Laboratory test abnormal [Unknown]
  - Hyperproteinaemia [Unknown]
  - Inflammation [Unknown]
  - Fatigue [Unknown]
  - Abdominal pain upper [Unknown]
  - Irritable bowel syndrome [Unknown]
  - Confusional state [Unknown]
  - Metabolic disorder [Unknown]
  - Post procedural complication [Unknown]
  - Attention deficit hyperactivity disorder [Unknown]
  - Loss of personal independence in daily activities [Unknown]
  - Thought blocking [Unknown]
  - Malaise [Unknown]
  - Chest discomfort [Unknown]
  - Eye pain [Unknown]
  - Headache [Unknown]
  - Anxiety [Unknown]
  - Paranoia [Unknown]
  - Rhinorrhoea [Unknown]
  - Sneezing [Unknown]
  - Oropharyngeal pain [Unknown]
  - Dry mouth [Unknown]
  - Muscle spasms [Unknown]
  - Tryptase increased [Unknown]
  - Faeces discoloured [Unknown]

NARRATIVE: CASE EVENT DATE: 20241221
